FAERS Safety Report 8884964 (Version 1)
Quarter: 2012Q4

REPORT INFORMATION
  Report Type: 
  Country: US (occurrence: US)
  Receive Date: 20121105
  Receipt Date: 20121105
  Transmission Date: 20130627
  Serious: Yes (Other)
  Sender: FDA-Public Use
  Company Number: US-009507513-1211USA000539

PATIENT
  Age: 69 Year
  Sex: Female

DRUGS (1)
  1. FOSAMAX [Suspect]
     Indication: OSTEOPOROSIS
     Dosage: UNK, qw
     Route: 048
     Dates: start: 199709, end: 2001

REACTIONS (2)
  - Oesophageal discomfort [Recovering/Resolving]
  - Oesophageal pain [Recovering/Resolving]
